FAERS Safety Report 12638579 (Version 1)
Quarter: 2016Q3

REPORT INFORMATION
  Report Type: Spontaneous
  Country: US (occurrence: US)
  Receive Date: 20160809
  Receipt Date: 20160809
  Transmission Date: 20161109
  Serious: Yes (Hospitalization)
  Sender: FDA-Public Use
  Company Number: US-FRESENIUS MEDICAL CARE RENAL THERAPIES GROUP-FMC-1605-000013

PATIENT
  Sex: Male
  Weight: 68.1 kg

DRUGS (2)
  1. GENTAMICIN. [Concomitant]
     Active Substance: GENTAMICIN
     Dosage: AS DIRECTED ONE DROP IN PD CATHETER EXIT SITE DAILY.
     Route: 065
  2. DELFLEX [Suspect]
     Active Substance: CALCIUM CHLORIDE\DEXTROSE\MAGNESIUM CHLORIDE\SODIUM CHLORIDE\SODIUM LACTATE
     Indication: END STAGE RENAL DISEASE
     Route: 033
     Dates: start: 201601

REACTIONS (2)
  - Peritonitis [Recovered/Resolved]
  - Constipation [None]
